FAERS Safety Report 16777166 (Version 3)
Quarter: 2019Q4

REPORT INFORMATION
  Report Type: Report from Study
  Country: US (occurrence: US)
  Receive Date: 20190905
  Receipt Date: 20191009
  Transmission Date: 20200122
  Serious: No
  Sender: FDA-Public Use
  Company Number: US-EMD SERONO-9102393

PATIENT
  Age: 33 Year
  Sex: Female

DRUGS (2)
  1. MAVENCLAD [Suspect]
     Active Substance: CLADRIBINE
     Dosage: SECOND WEEK THERAPY: TWO TABLETS ON DAYS 1 TO 2 AND ONE TABLET ON DAYS 3 TO 5 (EACH OF 10 MG)
     Route: 048
     Dates: start: 20190629
  2. MAVENCLAD [Suspect]
     Active Substance: CLADRIBINE
     Indication: MULTIPLE SCLEROSIS
     Dosage: FIRST WEEK THERAPY: TWO TABLETS ON DAYS 1 TO 2 AND ONE TABLET ON DAYS 3 TO 5 (EACH OF 10 MG)
     Route: 048
     Dates: start: 20190603, end: 20190607

REACTIONS (5)
  - Malaise [Unknown]
  - Product administration error [Unknown]
  - Sinus pain [Unknown]
  - Nasal congestion [Unknown]
  - Overdose [Unknown]

NARRATIVE: CASE EVENT DATE: 20190629
